FAERS Safety Report 5317361-1 (Version None)
Quarter: 2007Q2

REPORT INFORMATION
  Report Type: 
  Country: None (occurrence: None)
  Receive Date: 20070504
  Receipt Date: 20070501
  Transmission Date: 20071010
  Serious: Yes (Hospitalization)
  Sender: FDA-Public Use
  Company Number: JP-MERCK-0705USA00400

PATIENT
  Age: 30 Year
  Sex: Male

DRUGS (2)
  1. PROPECIA [Suspect]
     Indication: MALE PATTERN BALDNESS
     Route: 048
  2. HERBS (UNSPECIFIED) [Concomitant]
     Route: 048

REACTIONS (1)
  - HERPES ZOSTER [None]
